FAERS Safety Report 8557968-1 (Version None)
Quarter: 2012Q3

REPORT INFORMATION
  Report Type: 
  Country: None (occurrence: None)
  Receive Date: 20120801
  Receipt Date: 20120723
  Transmission Date: 20120928
  Serious: Yes (Other)
  Sender: FDA-Public Use
  Company Number: ES-ELI_LILLY_AND_COMPANY-ES201207006989

PATIENT
  Sex: Female

DRUGS (1)
  1. FORTEO [Suspect]
     Dosage: UNK, UNKNOWN
     Dates: start: 20120710

REACTIONS (5)
  - GROIN PAIN [None]
  - EAR DISORDER [None]
  - LETHARGY [None]
  - INJECTION SITE ERYTHEMA [None]
  - ASTHENIA [None]
